FAERS Safety Report 13731556 (Version 5)
Quarter: 2017Q4

REPORT INFORMATION
  Report Type: Spontaneous
  Country: KR (occurrence: KR)
  Receive Date: 20170707
  Receipt Date: 20171201
  Transmission Date: 20180320
  Serious: Yes (Other)
  Sender: FDA-Public Use
  Company Number: KR-009507513-1706KOR010677

PATIENT
  Age: 42 Year
  Sex: Female
  Weight: 56.2 kg

DRUGS (15)
  1. FENTANYL. [Concomitant]
     Active Substance: FENTANYL
     Dosage: 25 MICROGRAM, Q3D
     Route: 062
     Dates: start: 20170601, end: 20170616
  2. NOXAFIL [Suspect]
     Active Substance: POSACONAZOLE
     Indication: ANTIFUNGAL PROPHYLAXIS
     Dosage: 300 MG, BID
     Route: 048
     Dates: start: 20170523, end: 20170523
  3. CEFEPIME [Concomitant]
     Active Substance: CEFEPIME HYDROCHLORIDE
     Dosage: 2 G, TID
     Dates: start: 20170621, end: 20170621
  4. ALLOPURINOL. [Concomitant]
     Active Substance: ALLOPURINOL
     Indication: PROPHYLAXIS
     Dosage: 100 MG, THREE TIMES DAY
     Route: 048
     Dates: start: 20170522, end: 20170531
  5. SUSPEN ER [Concomitant]
     Indication: PYREXIA
     Dosage: 650 MG, ONCE DAILY
     Route: 048
     Dates: start: 20170523, end: 20170524
  6. FENTANYL. [Concomitant]
     Active Substance: FENTANYL
     Dosage: 400 MICROGRAM, PRN
     Route: 048
     Dates: start: 20170622, end: 20170622
  7. PROPACETAMOL [Concomitant]
     Active Substance: PROPACETAMOL
     Indication: PYREXIA
     Dosage: 1 G, PRN
     Route: 042
     Dates: start: 20170524, end: 20170615
  8. NOXAFIL [Suspect]
     Active Substance: POSACONAZOLE
     Dosage: 300 MG, QD
     Route: 048
     Dates: start: 20170524, end: 20170616
  9. CEFEPIME [Concomitant]
     Active Substance: CEFEPIME HYDROCHLORIDE
     Indication: PYREXIA
     Dosage: 2 G, THREE TIMES DAY
     Route: 042
     Dates: start: 20170522, end: 20170526
  10. PRED FORTE [Concomitant]
     Active Substance: PREDNISOLONE ACETATE
     Indication: UVEITIS
     Dosage: 1 GTT, TWICE DAY
     Route: 050
     Dates: start: 20170523, end: 20170601
  11. MORPHINE SULFATE. [Concomitant]
     Active Substance: MORPHINE SULFATE
     Indication: ABDOMINAL PAIN
     Dosage: 5 MG, PRN
     Route: 042
     Dates: start: 20170522, end: 20170527
  12. ULTRACET [Concomitant]
     Active Substance: ACETAMINOPHEN\TRAMADOL HYDROCHLORIDE
     Indication: ABDOMINAL PAIN
     Dosage: UNK
     Route: 048
     Dates: start: 20170523, end: 20170527
  13. ACETYLCYSTEINE. [Suspect]
     Active Substance: ACETYLCYSTEINE
  14. FENTANYL. [Concomitant]
     Active Substance: FENTANYL
     Indication: ABDOMINAL PAIN
     Dosage: 25 MICROGRAM, Q72HR
     Route: 062
     Dates: start: 20170523, end: 20170525
  15. PROPACETAMOL [Concomitant]
     Active Substance: PROPACETAMOL
     Dosage: 1 G, PRN
     Route: 042
     Dates: start: 20170621, end: 20170626

REACTIONS (11)
  - Insomnia [Recovered/Resolved]
  - Blood bilirubin increased [Recovered/Resolved]
  - Drug eruption [Recovered/Resolved]
  - Aspartate aminotransferase increased [Recovering/Resolving]
  - Constipation [Recovered/Resolved]
  - Leukaemia cutis [Recovering/Resolving]
  - Alanine aminotransferase increased [Recovering/Resolving]
  - Neutropenic colitis [Recovered/Resolved]
  - Pleural effusion [Recovered/Resolved]
  - Myalgia [Recovered/Resolved]
  - Diarrhoea [Recovered/Resolved]

NARRATIVE: CASE EVENT DATE: 20170524
